FAERS Safety Report 24569399 (Version 1)
Quarter: 2024Q4

REPORT INFORMATION
  Report Type: Spontaneous
  Country: US (occurrence: None)
  Receive Date: 20241030
  Receipt Date: 20241030
  Transmission Date: 20250115
  Serious: No
  Sender: Public
  Company Number: None

PATIENT
  Age: 90 Year
  Sex: Male
  Weight: 63.5 kg

DRUGS (1)
  1. ALENDRONATE [Suspect]
     Active Substance: ALENDRONATE SODIUM
     Indication: Bone density decreased
     Dosage: FREQUENCY : WEEKLY;?
     Route: 048
     Dates: start: 20240925, end: 20240926

REACTIONS (1)
  - Skin discolouration [None]

NARRATIVE: CASE EVENT DATE: 20240925
